FAERS Safety Report 25088484 (Version 1)
Quarter: 2025Q1

REPORT INFORMATION
  Report Type: Spontaneous
  Country: PL (occurrence: PL)
  Receive Date: 20250318
  Receipt Date: 20250318
  Transmission Date: 20250409
  Serious: Yes (Other)
  Sender: SANDOZ
  Company Number: PL-009507513-2261273

PATIENT
  Age: 53 Year
  Sex: Female

DRUGS (17)
  1. CARBOPLATIN [Suspect]
     Active Substance: CARBOPLATIN
     Dosage: 850.000MG TIW
     Route: 065
     Dates: start: 20240830, end: 20240830
  2. CARBOPLATIN [Suspect]
     Active Substance: CARBOPLATIN
     Indication: Lung adenocarcinoma stage IV
     Dosage: AREA UNDER THE CURVE (AUC) = 6
     Route: 065
     Dates: start: 20240808, end: 20240808
  3. PEMETREXED [Suspect]
     Active Substance: PEMETREXED
     Indication: Lung adenocarcinoma stage IV
     Dosage: 500.000MG/M2 TIW
     Route: 065
     Dates: start: 20240808, end: 20240808
  4. PEMETREXED [Suspect]
     Active Substance: PEMETREXED
     Dosage: 900.000MG TIW
     Route: 065
     Dates: start: 20240830, end: 20240830
  5. PEGFILGRASTIM [Suspect]
     Active Substance: PEGFILGRASTIM
     Indication: Prophylaxis
     Dosage: ON DAY 2 OF THE CHEMOTHERAPY CYCLE ONLY FOR CYCLES USING CARBOPLATIN
     Route: 058
     Dates: start: 20240809, end: 20240809
  6. PEMBROLIZUMAB [Suspect]
     Active Substance: PEMBROLIZUMAB
     Indication: Lung adenocarcinoma stage IV
     Dosage: 200.000MG TIW
     Route: 042
     Dates: start: 20240808, end: 20240808
  7. PEMBROLIZUMAB [Suspect]
     Active Substance: PEMBROLIZUMAB
     Dosage: 200.000MG TIW
     Route: 042
     Dates: start: 20240830, end: 20240830
  8. DEXAMETHASONE [Concomitant]
     Active Substance: DEXAMETHASONE
     Indication: Product used for unknown indication
     Route: 048
  9. ENOXAPARIN [Concomitant]
     Active Substance: ENOXAPARIN
     Indication: Fibrin D dimer increased
     Route: 065
     Dates: start: 20240808
  10. FOLIC ACID [Concomitant]
     Active Substance: FOLIC ACID
     Indication: Product used for unknown indication
     Dosage: 0.400MG QD
     Route: 065
  11. Indapres [Concomitant]
     Indication: Product used for unknown indication
     Dosage: 2.500MG QD
     Route: 065
  12. Indapres [Concomitant]
     Dosage: 2.500MG QD
     Route: 065
  13. Indapres [Concomitant]
     Dosage: 2.500MG QD
     Route: 065
  14. Indapres [Concomitant]
     Dosage: 2.500MG QD
     Route: 065
  15. Indapres [Concomitant]
     Dosage: 2.500MG QD
     Route: 065
  16. Indapres [Concomitant]
     Dosage: 2.500MG QD
     Route: 065
  17. Prestarium Co [Concomitant]
     Indication: Product used for unknown indication
     Dosage: STRENGTH: 7+5 (UNITS NOT PROVIDED), IN THE MORNING
     Route: 065

REACTIONS (5)
  - Hyperthyroidism [Unknown]
  - Lid lag [Unknown]
  - Bone pain [Recovered/Resolved]
  - Arthralgia [Recovered/Resolved]
  - Inappropriate schedule of product administration [Unknown]

NARRATIVE: CASE EVENT DATE: 20240801
